FAERS Safety Report 21259496 (Version 1)
Quarter: 2022Q3

REPORT INFORMATION
  Report Type: Spontaneous
  Country: None (occurrence: US)
  Receive Date: 20220826
  Receipt Date: 20220826
  Transmission Date: 20221027
  Serious: No
  Sender: FDA-Public Use
  Company Number: US-ITALFARMACO SPA-2132275

PATIENT
  Age: 66 Year
  Sex: Female

DRUGS (9)
  1. TIGLUTIK [Suspect]
     Active Substance: RILUZOLE
     Indication: Amyotrophic lateral sclerosis
     Route: 048
     Dates: start: 20210618, end: 202206
  2. ALPHAGAN P [Concomitant]
     Active Substance: BRIMONIDINE TARTRATE
  3. AMLODIPINE [Concomitant]
     Active Substance: AMLODIPINE BESYLATE
  4. COSOPT [Concomitant]
     Active Substance: DORZOLAMIDE HYDROCHLORIDE\TIMOLOL MALEATE
  5. HUMULIN N [Concomitant]
     Active Substance: INSULIN HUMAN
  6. VITAMINS [Concomitant]
     Active Substance: VITAMINS
  7. PROBIOTA BIFIDO (BIFIDOBACTERIUM BIFIDUM, BIFIDOBACTERIUM BREVE, BIFID [Concomitant]
  8. TRAVATAN Z [Concomitant]
     Active Substance: TRAVOPROST
  9. TYLENOL [Concomitant]
     Active Substance: ACETAMINOPHEN

REACTIONS (2)
  - Hepatic enzyme increased [Unknown]
  - Hepatic lesion [Unknown]

NARRATIVE: CASE EVENT DATE: 20220421
